FAERS Safety Report 6388523-X (Version None)
Quarter: 2009Q4

REPORT INFORMATION
  Report Type: 
  Country: None (occurrence: None)
  Receive Date: 20091005
  Receipt Date: 20090924
  Transmission Date: 20100525
  Serious: Yes (Other)
  Sender: FDA-Public Use
  Company Number: B0596101A

PATIENT
  Sex: Female

DRUGS (1)
  1. CLENIL [Suspect]
     Indication: COUGH
     Route: 055
     Dates: start: 20090401

REACTIONS (3)
  - ABDOMINAL PAIN [None]
  - ANAL HAEMORRHAGE [None]
  - CHEST PAIN [None]
